FAERS Safety Report 5057852-4 (Version None)
Quarter: 2006Q3

REPORT INFORMATION
  Report Type: 
  Country: None (occurrence: None)
  Receive Date: 20060721
  Receipt Date: 20060316
  Transmission Date: 20061208
  Serious: No
  Sender: FDA-Public Use
  Company Number: US-GLAXOSMITHKLINE-A0597860A

PATIENT
  Age: 69 Year
  Sex: Female

DRUGS (7)
  1. AVANDIA [Suspect]
     Dosage: 8MG PER DAY
     Route: 048
     Dates: start: 20060208
  2. FLONASE [Concomitant]
  3. ALLEGRA [Concomitant]
  4. LEVOTHROID [Concomitant]
  5. VITAMIN E [Concomitant]
  6. ZYMAR [Concomitant]
  7. UNKNOWN MEDICATION [Concomitant]

REACTIONS (2)
  - PRURITUS GENERALISED [None]
  - TINNITUS [None]
